FAERS Safety Report 8988241 (Version 3)
Quarter: 2013Q1

REPORT INFORMATION
  Report Type: Spontaneous
  Country: US (occurrence: US)
  Receive Date: 20121227
  Receipt Date: 20130304
  Transmission Date: 20140127
  Serious: Yes (Death, Other)
  Sender: FDA-Public Use
  Company Number: US-ASTELLAS-2012US012689

PATIENT
  Age: 73 None
  Sex: Male

DRUGS (1)
  1. XTANDI [Suspect]
     Indication: NEOPLASM MALIGNANT
     Dosage: UNK
     Route: 048
     Dates: start: 201211

REACTIONS (6)
  - Product size issue [Unknown]
  - Death [Fatal]
  - Dysphagia [Unknown]
  - Deep vein thrombosis [Unknown]
  - Tongue disorder [Unknown]
  - Muscular weakness [Unknown]
